FAERS Safety Report 6021144-7 (Version None)
Quarter: 2008Q4

REPORT INFORMATION
  Report Type: 
  Country: None (occurrence: None)
  Receive Date: 20081229
  Receipt Date: 20081223
  Transmission Date: 20090506
  Serious: Yes (Hospitalization)
  Sender: FDA-Public Use
  Company Number: ES-AVENTIS-200816809EU

PATIENT
  Age: 92 Year
  Sex: Female

DRUGS (7)
  1. SEGURIL                            /00032601/ [Suspect]
     Dosage: DOSE: UNK
     Dates: start: 19980101
  2. ATORVASTATIN CALCIUM [Suspect]
     Dosage: DOSE: UNK
     Dates: start: 20060101
  3. TRIFLUSAL [Suspect]
     Indication: ATRIAL FIBRILLATION
     Dosage: DOSE: UNK
     Dates: start: 19980101
  4. DIGOXIN [Suspect]
     Indication: ATRIAL FIBRILLATION
     Dosage: DOSE: UNK
     Dates: start: 19980101
  5. NIMODIPINE [Suspect]
     Dates: start: 19980101
  6. ALPRAZOLAM [Suspect]
     Dates: start: 20070101
  7. NORPRAMIN                          /00661201/ [Suspect]
     Dates: start: 20070101

REACTIONS (1)
  - HEPATITIS TOXIC [None]
